FAERS Safety Report 22395299 (Version 2)
Quarter: 2023Q2

REPORT INFORMATION
  Report Type: Spontaneous
  Country: US (occurrence: US)
  Receive Date: 20230601
  Receipt Date: 20230607
  Transmission Date: 20230721
  Serious: Yes (Hospitalization)
  Sender: FDA-Public Use
  Company Number: US-TEVA-2023-US-2891118

PATIENT
  Age: 64 Year
  Sex: Female

DRUGS (5)
  1. CALCITRIOL [Suspect]
     Active Substance: CALCITRIOL
     Indication: Hypoparathyroidism
     Dosage: .5 MICROGRAM DAILY;
     Route: 065
  2. CALCITRIOL [Suspect]
     Active Substance: CALCITRIOL
     Dosage: 1 MICROGRAM DAILY;
     Route: 065
  3. CALCITRIOL [Suspect]
     Active Substance: CALCITRIOL
     Dosage: 0.5 MCG AM/ 0.25MCG PM
     Route: 065
  4. CALCIUM CITRATE [Suspect]
     Active Substance: CALCIUM CITRATE
     Indication: Hypoparathyroidism
     Dosage: 675 MILLIGRAM DAILY;
     Route: 065
  5. CALCIFEDIOL [Suspect]
     Active Substance: CALCIFEDIOL
     Indication: Hypoparathyroidism
     Dosage: 4000 IU (INTERNATIONAL UNIT) DAILY;
     Route: 065

REACTIONS (5)
  - Milk-alkali syndrome [Recovering/Resolving]
  - Fatigue [Recovering/Resolving]
  - Balance disorder [Recovering/Resolving]
  - Confusional state [Recovering/Resolving]
  - Paraesthesia [Recovering/Resolving]
